FAERS Safety Report 10606371 (Version 9)
Quarter: 2016Q1

REPORT INFORMATION
  Report Type: Report from Study
  Country: IT (occurrence: IT)
  Receive Date: 20141125
  Receipt Date: 20160212
  Transmission Date: 20160525
  Serious: Yes (Other)
  Sender: FDA-Public Use
  Company Number: PHHY2014IT071555

PATIENT
  Age: 43 Year
  Sex: Female

DRUGS (1)
  1. GILENYA [Suspect]
     Active Substance: FINGOLIMOD HYDROCHLORIDE
     Indication: MULTIPLE SCLEROSIS
     Dosage: 0.5 MG, QD
     Route: 048
     Dates: start: 20131008, end: 20141007

REACTIONS (13)
  - Oropharyngeal pain [Unknown]
  - Cough [Unknown]
  - Haematocrit decreased [Unknown]
  - Lymphopenia [Recovered/Resolved]
  - Lymphocyte count decreased [Unknown]
  - Throat irritation [Unknown]
  - Pharyngitis [Unknown]
  - Tinea pedis [Unknown]
  - Blood bilirubin increased [Unknown]
  - Eosinophil count decreased [Unknown]
  - Leukopenia [Recovered/Resolved]
  - Neutrophil count decreased [Unknown]
  - Monocyte count decreased [Unknown]

NARRATIVE: CASE EVENT DATE: 20140123
